FAERS Safety Report 8272641 (Version 2)
Quarter: 2013Q4

REPORT INFORMATION
  Report Type: Spontaneous
  Country: US (occurrence: None)
  Receive Date: 20111125
  Receipt Date: 20131009
  Transmission Date: 20140711
  Serious: Yes (Hospitalization, Other)
  Sender: FDA-Public Use
  Company Number: CIP11003167

PATIENT
  Age: 67 Year
  Sex: Female

DRUGS (6)
  1. DIDRONEL [Suspect]
     Indication: OSTEOPOROSIS
     Dosage: ORAL
     Route: 048
  2. ACTONEL [Suspect]
     Dosage: ORAL
     Route: 048
  3. BONIVA [Suspect]
     Indication: OSTEOPOROSIS
     Dosage: 150 MG, 1 /MONTH, ORAL ; 150 MG, 1 /MONTH, ORAL ; 150 MG, 1 /MONTH, ORAL
     Route: 048
     Dates: start: 2006, end: 20081104
  4. FOSAMAX [Suspect]
     Indication: OSTEOPOROSIS
     Dosage: 5 MG
     Dates: start: 1998, end: 2004
  5. ALENDRONATE SODIUM [Suspect]
     Indication: OSTEOPOROSIS
     Dosage: 70 MG, 1 /WEEK
     Dates: start: 20081104, end: 20090526
  6. FOSAMAX [Suspect]
     Indication: OSTEOPOROSIS
     Dosage: 70 MG, 1 /WEEK, ORAL
     Route: 048
     Dates: start: 2004, end: 2006

REACTIONS (12)
  - Femur fracture [None]
  - Fracture displacement [None]
  - Fall [None]
  - Arthralgia [None]
  - Pain in extremity [None]
  - Device breakage [None]
  - Fracture nonunion [None]
  - Muscular weakness [None]
  - Gait disturbance [None]
  - Ankle fracture [None]
  - Joint effusion [None]
  - Impaired healing [None]
